FAERS Safety Report 4562830-5 (Version None)
Quarter: 2005Q1

REPORT INFORMATION
  Report Type: 
  Country: None (occurrence: None)
  Receive Date: 20050124
  Receipt Date: 20050111
  Transmission Date: 20050727
  Serious: Yes (Disabling)
  Sender: FDA-Public Use
  Company Number: 2005014049

PATIENT
  Age: 43 Year
  Sex: Female

DRUGS (8)
  1. VORICONAZOLE (VORICONAZOLE) [Suspect]
     Indication: SINUSITIS ASPERGILLUS
  2. TACROLIMUS (TACROLIMUS) [Concomitant]
  3. MYCOPHENOLATE MOFETIL(MYCOPHENOLATE MOFETIL) [Concomitant]
  4. AMPHOTERICINE B, LIPOSOME(AMPHOTERICIN B, LIPOSOME) [Concomitant]
  5. METFORMIN HCL [Concomitant]
  6. ROSGLITAZONE MALEATE (ROSGLITAZONE MALEATE) [Concomitant]
  7. LEVOTHYROXINE SODIUM [Concomitant]
  8. AMLODIPINE [Concomitant]

REACTIONS (9)
  - ANAEMIA [None]
  - DEMYELINATING POLYNEUROPATHY [None]
  - DISEASE RECURRENCE [None]
  - FEELING ABNORMAL [None]
  - HEPATITIS C [None]
  - HYPOREFLEXIA [None]
  - INSOMNIA [None]
  - LEUKOPENIA [None]
  - THROMBOCYTOPENIA [None]
